FAERS Safety Report 22319285 (Version 6)
Quarter: 2024Q1

REPORT INFORMATION
  Report Type: Spontaneous
  Country: CA (occurrence: CA)
  Receive Date: 20230515
  Receipt Date: 20240328
  Transmission Date: 20240409
  Serious: Yes (Other)
  Sender: FDA-Public Use
  Company Number: CA-PFIZER INC-PV202300084049

PATIENT
  Age: 62 Year
  Sex: Female
  Weight: 79.9 kg

DRUGS (4)
  1. IBRANCE [Suspect]
     Active Substance: PALBOCICLIB
     Indication: Breast cancer metastatic
     Dosage: 125 MG (21 DAYS ON, THEN 7 DAYS OFF)
     Dates: start: 20230505
  2. IBRANCE [Suspect]
     Active Substance: PALBOCICLIB
     Dosage: 125 MG (21 DAYS ON, THEN 7 DAYS OFF)
     Dates: start: 20230601
  3. IBRANCE [Suspect]
     Active Substance: PALBOCICLIB
     Dosage: 125 MG  FOR 21 DAYS ON THEN 7 DAYS OFF
     Dates: start: 2024
  4. ANASTROZOLE [Concomitant]
     Active Substance: ANASTROZOLE
     Dosage: UNK

REACTIONS (7)
  - Radiotherapy [Unknown]
  - Malaise [Unknown]
  - Pain [Unknown]
  - Insomnia [Unknown]
  - Pyrexia [Unknown]
  - Brain fog [Unknown]
  - Condition aggravated [Unknown]

NARRATIVE: CASE EVENT DATE: 20230501
